FAERS Safety Report 5947878-8 (Version None)
Quarter: 2008Q4

REPORT INFORMATION
  Report Type: 
  Country: None (occurrence: None)
  Receive Date: 20081107
  Receipt Date: 20081028
  Transmission Date: 20090506
  Serious: Yes (Other)
  Sender: FDA-Public Use
  Company Number: GXKR2008GB10282

PATIENT
  Age: 23 Year
  Sex: Female
  Weight: 45 kg

DRUGS (2)
  1. CEFTRIAXONE [Suspect]
     Indication: PELVIC INFLAMMATORY DISEASE
     Dosage: 1 G, INTRAVENOUS
     Route: 042
     Dates: start: 20080918, end: 20080918
  2. POTASSIUM CHLORIDE [Concomitant]

REACTIONS (2)
  - HYPERTONIA [None]
  - TACHYCARDIA [None]
